FAERS Safety Report 8193039-4 (Version None)
Quarter: 2012Q1

REPORT INFORMATION
  Report Type: 
  Country: None (occurrence: None)
  Receive Date: 20120221
  Receipt Date: 20111104
  Transmission Date: 20120608
  Serious: Yes (Other)
  Sender: FDA-Public Use
  Company Number: 11-001208

PATIENT
  Sex: Female

DRUGS (1)
  1. LO LOESTRIN FE [Suspect]
     Dosage: 10/1000 UG, QD, ORAL
     Route: 048
     Dates: start: 20110101

REACTIONS (1)
  - LIVER DISORDER [None]
